FAERS Safety Report 7214252-6 (Version None)
Quarter: 2011Q1

REPORT INFORMATION
  Report Type: 
  Country: None (occurrence: None)
  Receive Date: 20110107
  Receipt Date: 20101224
  Transmission Date: 20110831
  Serious: Yes (Other)
  Sender: FDA-Public Use
  Company Number: IT-JNJFOC-20101208411

PATIENT
  Sex: Female

DRUGS (2)
  1. DAKTARIN [Suspect]
     Route: 003
  2. DAKTARIN [Suspect]
     Indication: FUNGAL INFECTION
     Route: 003

REACTIONS (2)
  - APPLICATION SITE REACTION [None]
  - SKIN EXFOLIATION [None]
